FAERS Safety Report 9858647 (Version 1)
Quarter: 2014Q1

REPORT INFORMATION
  Report Type: Other
  Country: GB (occurrence: GB)
  Receive Date: 20140131
  Receipt Date: 20140131
  Transmission Date: 20141002
  Serious: Yes (Hospitalization)
  Sender: FDA-Public Use
  Company Number: GB-SHIRE-ALL1-2014-00643

PATIENT
  Age: 10 Year
  Sex: Male

DRUGS (1)
  1. ELAPRASE [Suspect]
     Indication: PRODUCT USED FOR UNKNOWN INDICATION
     Dosage: 18 MG (3 VIALS), 1X/2WKS(FORTNIGHTLY)
     Route: 041

REACTIONS (3)
  - Constipation [Unknown]
  - Somnolence [Unknown]
  - Dyspnoea [Unknown]
